FAERS Safety Report 10149054 (Version 2)
Quarter: 2014Q2

REPORT INFORMATION
  Report Type: Report from Study
  Country: US (occurrence: US)
  Receive Date: 20140502
  Receipt Date: 20140502
  Transmission Date: 20141212
  Serious: Yes (Hospitalization)
  Sender: FDA-Public Use
  Company Number: US-JNJFOC-20140300362

PATIENT
  Age: 43 Year
  Sex: Male

DRUGS (5)
  1. RISPERDAL CONSTA [Suspect]
     Indication: PSYCHOTIC DISORDER
     Route: 030
  2. RISPERDAL CONSTA [Suspect]
     Indication: PSYCHOTIC DISORDER
     Route: 030
     Dates: start: 20140210, end: 20140210
  3. RISPERDAL [Suspect]
     Indication: SCHIZOPHRENIA
     Route: 048
     Dates: start: 20131119, end: 20140210
  4. COGENTIN [Concomitant]
     Indication: EXTRAPYRAMIDAL DISORDER
     Route: 065
     Dates: start: 201401
  5. COGENTIN [Concomitant]
     Indication: EXTRAPYRAMIDAL DISORDER
     Route: 065

REACTIONS (4)
  - Extrapyramidal disorder [Recovered/Resolved]
  - Psychotic disorder [Recovered/Resolved]
  - Tremor [Recovered/Resolved]
  - Cognitive disorder [Recovered/Resolved]
